FAERS Safety Report 4831609-9 (Version None)
Quarter: 2005Q4

REPORT INFORMATION
  Report Type: 
  Country: None (occurrence: None)
  Receive Date: 20051116
  Receipt Date: 20051103
  Transmission Date: 20060501
  Serious: Yes (Other)
  Sender: FDA-Public Use
  Company Number: 2005151585

PATIENT
  Age: 60 Year
  Sex: Female

DRUGS (3)
  1. ZYVOX [Suspect]
     Indication: INFECTION
     Dosage: 1200 MG (600 MG, BID INTERVAL: EVERY DAY), ORAL
     Route: 048
     Dates: start: 20040101, end: 20040101
  2. WARFARIN SODIUM [Concomitant]
  3. LEVOFLOXACIN [Concomitant]

REACTIONS (6)
  - DIABETES MELLITUS [None]
  - GENERAL PHYSICAL HEALTH DETERIORATION [None]
  - INTERNATIONAL NORMALISED RATIO INCREASED [None]
  - NEPHROPATHY [None]
  - NEUTROPENIA [None]
  - THROMBOCYTOPENIA [None]
